FAERS Safety Report 18253116 (Version 3)
Quarter: 2020Q4

REPORT INFORMATION
  Report Type: Report from Study
  Country: None (occurrence: JP)
  Receive Date: 20200910
  Receipt Date: 20201214
  Transmission Date: 20210113
  Serious: Yes (Hospitalization)
  Sender: FDA-Public Use
  Company Number: JP-ABBVIE-20K-087-3371154-00

PATIENT
  Age: 65 Year
  Sex: Female

DRUGS (2)
  1. DUODOPA [Suspect]
     Active Substance: CARBIDOPA\LEVODOPA
     Indication: PARKINSON^S DISEASE
     Route: 050
     Dates: start: 20200305, end: 202003
  2. DUODOPA [Suspect]
     Active Substance: CARBIDOPA\LEVODOPA
     Route: 050
     Dates: start: 20200317

REACTIONS (23)
  - Foot fracture [Unknown]
  - Back injury [Unknown]
  - Constricted affect [Unknown]
  - Dyskinesia [Unknown]
  - Constipation [Unknown]
  - Oropharyngeal discomfort [Not Recovered/Not Resolved]
  - Parkinson^s disease [Unknown]
  - Balance disorder [Unknown]
  - Back injury [Unknown]
  - Chest discomfort [Not Recovered/Not Resolved]
  - Angina pectoris [Unknown]
  - Dyspnoea [Unknown]
  - Stoma site discharge [Unknown]
  - Therapeutic product effect incomplete [Unknown]
  - Chest pain [Recovered/Resolved]
  - Back pain [Unknown]
  - Fall [Unknown]
  - Fall [Recovered/Resolved]
  - Abdominal pain upper [Unknown]
  - Eczema [Unknown]
  - Malaise [Unknown]
  - Stoma site pain [Unknown]
  - Insomnia [Unknown]

NARRATIVE: CASE EVENT DATE: 2020
